FAERS Safety Report 23402421 (Version 1)
Quarter: 2024Q1

REPORT INFORMATION
  Report Type: Spontaneous
  Country: IT (occurrence: IT)
  Receive Date: 20240115
  Receipt Date: 20240115
  Transmission Date: 20240410
  Serious: Yes (Other)
  Sender: FDA-Public Use
  Company Number: IT-PFIZER INC-PV202400003603

PATIENT
  Sex: Male

DRUGS (1)
  1. TAVOR (LORAZEPAM) [Suspect]
     Active Substance: LORAZEPAM
     Indication: Anxiety
     Dosage: UNK
     Route: 060

REACTIONS (1)
  - Extrasystoles [Unknown]

NARRATIVE: CASE EVENT DATE: 20230101
